FAERS Safety Report 9520209 (Version 1)
Quarter: 2013Q3

REPORT INFORMATION
  Report Type: Spontaneous
  Country: US (occurrence: US)
  Receive Date: 20130912
  Receipt Date: 20130912
  Transmission Date: 20140515
  Serious: No
  Sender: FDA-Public Use
  Company Number: US-MUTUAL PHARMACEUTICAL COMPANY, INC.-SFTM20120026

PATIENT
  Sex: Male

DRUGS (7)
  1. SULFAMETHOXAZOLE/TRIMETHOPRIM [Suspect]
     Indication: INFUSION SITE INFECTION
     Route: 048
     Dates: start: 201211, end: 201211
  2. COLCRYS (COLCHICINE) [Suspect]
     Indication: PERICARDITIS
     Route: 048
     Dates: start: 20121115
  3. COLCRYS (COLCHICINE) [Suspect]
     Route: 048
     Dates: start: 20121101, end: 20121114
  4. COLCRYS (COLCHICINE) [Suspect]
     Route: 048
     Dates: start: 2012, end: 20121031
  5. COLCRYS (COLCHICINE) [Suspect]
     Route: 048
     Dates: start: 2012, end: 2012
  6. LEVOFLOXACIN [Suspect]
     Indication: PNEUMONIA
     Route: 048
     Dates: start: 201211, end: 201211
  7. DEXILANT [Suspect]
     Indication: GASTROOESOPHAGEAL REFLUX DISEASE
     Route: 048
     Dates: start: 20121112

REACTIONS (2)
  - Renal pain [Not Recovered/Not Resolved]
  - Decreased appetite [Recovered/Resolved]
